FAERS Safety Report 6482391-3 (Version None)
Quarter: 2009Q4

REPORT INFORMATION
  Report Type: 
  Country: None (occurrence: None)
  Receive Date: 20091208
  Receipt Date: 20090601
  Transmission Date: 20100525
  Serious: No
  Sender: FDA-Public Use
  Company Number: US-AMGEN-TCS344946

PATIENT
  Sex: Female
  Weight: 120.8 kg

DRUGS (13)
  1. ENBREL [Suspect]
     Indication: PSORIATIC ARTHROPATHY
     Route: 058
     Dates: start: 20090201
  2. GLYBURIDE AND METFORMIN HYDROCHLORIDE [Suspect]
  3. SYNTHROID [Concomitant]
  4. LEVEMIR [Concomitant]
     Dates: start: 20090501
  5. OMEPRAZOLE [Concomitant]
     Dates: start: 20090501
  6. OXYCODONE HCL AND ACETAMINOPHEN [Concomitant]
  7. MINOCYCLINE [Concomitant]
     Dates: start: 20090401
  8. LISINOPRIL [Concomitant]
     Dates: start: 20090401
  9. ZYRTEC [Concomitant]
  10. NEURONTIN [Concomitant]
  11. METOPROLOL [Concomitant]
  12. LASIX [Concomitant]
  13. TRAZODONE [Concomitant]

REACTIONS (6)
  - DIABETIC ENTEROPATHY [None]
  - DIARRHOEA [None]
  - INJECTION SITE ERYTHEMA [None]
  - INJECTION SITE PAIN [None]
  - INJECTION SITE SWELLING [None]
  - SEASONAL ALLERGY [None]
